FAERS Safety Report 6245209-X (Version None)
Quarter: 2009Q2

REPORT INFORMATION
  Report Type: 
  Country: None (occurrence: None)
  Receive Date: 20090625
  Receipt Date: 20090619
  Transmission Date: 20091009
  Serious: Yes (Death, Hospitalization)
  Sender: FDA-Public Use
  Company Number: PHHO2009GB07734

PATIENT
  Sex: Male

DRUGS (19)
  1. CYCLOSPORINE [Suspect]
     Indication: RENAL TRANSPLANT
     Dosage: 100 MG, BID
     Route: 048
     Dates: start: 20030630
  2. CYCLOSPORINE [Suspect]
     Dosage: 50 MG, BID
     Route: 048
     Dates: start: 20030704
  3. CYCLOSPORINE [Suspect]
     Dosage: 75 MG, BID
     Route: 048
  4. METHYLPREDNISOLONE [Suspect]
     Dosage: 500 MG, QD
     Route: 042
     Dates: start: 20030708, end: 20030711
  5. MYCOPHENOLATE MOFETIL [Concomitant]
     Dosage: UNK
     Route: 048
     Dates: end: 20030919
  6. PREDNISOLONE [Concomitant]
  7. GANCICLOVIR [Concomitant]
  8. ATENOLOL [Concomitant]
  9. OMEPRAZOLE [Concomitant]
  10. METOCLOPRAMIDE [Concomitant]
  11. AMIODARONE [Concomitant]
  12. CO-TRIMOXAZOLE [Concomitant]
  13. LINEZOLID [Concomitant]
  14. ACTRAPID [Concomitant]
  15. AUGMENTIN [Concomitant]
  16. DIGOXIN [Concomitant]
  17. ENOXAPARIN SODIUM [Concomitant]
  18. FRUSEMIDE [Concomitant]
  19. RANITIDINE [Concomitant]

REACTIONS (16)
  - ABDOMINAL PAIN [None]
  - ANGINA UNSTABLE [None]
  - BRONCHOPULMONARY ASPERGILLOSIS [None]
  - CARDIOMEGALY [None]
  - CHEST PAIN [None]
  - DYSPNOEA [None]
  - ENTEROBACTER BACTERAEMIA [None]
  - HYDRONEPHROSIS [None]
  - KIDNEY TRANSPLANT REJECTION [None]
  - PLEURAL EFFUSION [None]
  - PSYCHOTIC DISORDER [None]
  - RENAL TUBULAR NECROSIS [None]
  - SEPTIC SHOCK [None]
  - TROPONIN INCREASED [None]
  - URINE OUTPUT DECREASED [None]
  - WHITE BLOOD CELL COUNT INCREASED [None]
